FAERS Safety Report 8462700-6 (Version None)
Quarter: 2012Q2

REPORT INFORMATION
  Report Type: 
  Country: None (occurrence: None)
  Receive Date: 20120625
  Receipt Date: 20120613
  Transmission Date: 20120825
  Serious: Yes (Other)
  Sender: FDA-Public Use
  Company Number: JP-VERTEX PHARMACEUTICALS INC.-AE-2012-009014

PATIENT
  Age: 68 Year
  Sex: Male

DRUGS (5)
  1. TELAVIC (TELAPREVIR) [Suspect]
     Indication: HEPATITIS C
     Route: 048
     Dates: start: 20120403
  2. PEGINTERFERON ALFA-2B [Concomitant]
     Route: 058
     Dates: start: 20120410
  3. ALLOPURINOL [Concomitant]
     Route: 048
     Dates: start: 20120410
  4. PEGINTERFERON ALFA-2B [Concomitant]
     Route: 058
     Dates: start: 20120403, end: 20120409
  5. RIBAVIRIN [Concomitant]
     Route: 048
     Dates: start: 20120403

REACTIONS (6)
  - ENANTHEMA [None]
  - RASH [None]
  - CHEILITIS [None]
  - BLOOD CREATININE INCREASED [None]
  - RASH GENERALISED [None]
  - HYPERURICAEMIA [None]
